FAERS Safety Report 7715918-1 (Version None)
Quarter: 2011Q3

REPORT INFORMATION
  Report Type: 
  Country: None (occurrence: None)
  Receive Date: 20110829
  Receipt Date: 20110817
  Transmission Date: 20111222
  Serious: Yes (Hospitalization)
  Sender: FDA-Public Use
  Company Number: JP-JNJFOC-20110706276

PATIENT
  Sex: Female
  Weight: 43 kg

DRUGS (14)
  1. GOODMIN [Concomitant]
     Indication: SCHIZOPHRENIA
     Route: 048
     Dates: start: 20110604
  2. INVEGA [Concomitant]
     Route: 048
     Dates: start: 20110601
  3. SENNOSIDE [Concomitant]
     Indication: CONSTIPATION
     Route: 048
  4. LEXOTAN [Concomitant]
     Indication: SCHIZOPHRENIA
     Route: 048
     Dates: start: 20110605
  5. SEPAZON [Concomitant]
     Route: 048
     Dates: start: 20110605
  6. PALIPERIDONE [Suspect]
     Indication: SCHIZOPHRENIA
     Route: 030
     Dates: start: 20110614, end: 20110614
  7. SEPAZON [Concomitant]
     Indication: SCHIZOPHRENIA
     Route: 048
     Dates: start: 20110712
  8. INVEGA [Concomitant]
     Route: 048
     Dates: start: 20110604, end: 20110606
  9. HALCION [Concomitant]
     Indication: SCHIZOPHRENIA
     Route: 048
  10. INVEGA [Concomitant]
     Indication: SCHIZOPHRENIA
     Route: 048
     Dates: end: 20110603
  11. MAGMITT [Concomitant]
     Indication: CONSTIPATION
     Route: 048
  12. FLUNITRAZEPAM [Concomitant]
     Indication: SCHIZOPHRENIA
     Route: 048
     Dates: start: 20110604
  13. PALIPERIDONE [Suspect]
     Route: 030
     Dates: start: 20110607, end: 20110607
  14. LEXOTAN [Concomitant]
     Route: 048
     Dates: start: 20110604, end: 20110604

REACTIONS (1)
  - PSYCHIATRIC SYMPTOM [None]
